FAERS Safety Report 15192603 (Version 1)
Quarter: 2018Q3

REPORT INFORMATION
  Report Type: Report from Study
  Country: None (occurrence: US)
  Receive Date: 20180725
  Receipt Date: 20180725
  Transmission Date: 20181010
  Serious: Yes (Other)
  Sender: FDA-Public Use
  Company Number: US-ABBVIE-18K-163-2384743-00

PATIENT
  Age: 52 Year
  Sex: Female
  Weight: 61.29 kg

DRUGS (2)
  1. HUMIRA [Suspect]
     Active Substance: ADALIMUMAB
     Route: 058
     Dates: start: 20180609
  2. HUMIRA [Suspect]
     Active Substance: ADALIMUMAB
     Indication: RHEUMATOID ARTHRITIS
     Route: 058
     Dates: end: 201804

REACTIONS (4)
  - Meniscus injury [Recovered/Resolved]
  - Meniscus injury [Not Recovered/Not Resolved]
  - Injection site pain [Not Recovered/Not Resolved]
  - Fall [Recovered/Resolved]

NARRATIVE: CASE EVENT DATE: 201805
